FAERS Safety Report 5721365-4 (Version None)
Quarter: 2008Q2

REPORT INFORMATION
  Report Type: 
  Country: None (occurrence: None)
  Receive Date: 20080429
  Receipt Date: 20080423
  Transmission Date: 20081010
  Serious: Yes (Hospitalization)
  Sender: FDA-Public Use
  Company Number: GB-SANOFI-SYNTHELABO-F01200800531

PATIENT
  Sex: Female
  Weight: 40.5 kg

DRUGS (6)
  1. LOPERAMIDE HCL [Concomitant]
     Dosage: UNK
     Route: 048
     Dates: start: 20071001
  2. PENICILLIN V [Concomitant]
     Dosage: 1 G
     Route: 048
     Dates: start: 20071001
  3. MICARDIS HCT [Concomitant]
     Dosage: 40/12.5 MG 1 DF
     Route: 048
     Dates: start: 20070301
  4. OMEPRAZOLE [Concomitant]
     Dosage: 20 MG
     Route: 048
     Dates: start: 20071101
  5. CAPECITABINE [Suspect]
     Dosage: 1000 MG/M2 BID DAYS 1-14
     Route: 048
     Dates: start: 20080319
  6. OXALIPLATIN [Suspect]
     Indication: COLORECTAL CANCER METASTATIC
     Route: 041
     Dates: start: 20080319, end: 20080319

REACTIONS (1)
  - TRANSIENT ISCHAEMIC ATTACK [None]
